FAERS Safety Report 15269910 (Version 1)
Quarter: 2018Q3

REPORT INFORMATION
  Report Type: Report from Study
  Country: JP (occurrence: JP)
  Receive Date: 20180813
  Receipt Date: 20180813
  Transmission Date: 20181010
  Serious: Yes (Other)
  Sender: FDA-Public Use
  Company Number: JP-PFIZER INC-2018321968

PATIENT
  Age: 221 Month
  Sex: Male

DRUGS (16)
  1. AZATHIOPRINE. [Suspect]
     Active Substance: AZATHIOPRINE
     Indication: KIDNEY TRANSPLANT REJECTION
     Dosage: UNK
  2. GUSPERIMUS [Suspect]
     Active Substance: GUSPERIMUS
     Indication: IMMUNOSUPPRESSANT DRUG THERAPY
  3. GUSPERIMUS [Suspect]
     Active Substance: GUSPERIMUS
     Indication: KIDNEY TRANSPLANT REJECTION
  4. OKT3 [Suspect]
     Active Substance: MUROMONAB-CD3
     Indication: KIDNEY TRANSPLANT REJECTION
  5. TRIMETHOPRIM SULFAMETHOXAZOLE [Concomitant]
     Active Substance: SULFAMETHOXAZOLE\TRIMETHOPRIM
     Dosage: UNK UNK, 2X/WEEK (0.05 G/KG TWICE A WEEK IN TWO DIVIDED DOSES)
  6. ANTILYMPHOCYTE GLOBULIN [Suspect]
     Active Substance: THYMOCYTE IMMUNE GLOBULIN NOS
     Indication: KIDNEY TRANSPLANT REJECTION
     Dosage: UNK
  7. GUSPERIMUS [Suspect]
     Active Substance: GUSPERIMUS
     Indication: PROPHYLAXIS
     Dosage: 5 MG/KG, DAILY (DURING THE FIRST 5 DAYS OF THE CYA REGIMEN)
     Route: 042
  8. DIPYRIDAMOLE. [Concomitant]
     Active Substance: DIPYRIDAMOLE
     Dosage: 5 MG/KG, UNK (PER OS IN THREE DIVIDED DOSES)
     Route: 048
  9. METHYLPREDNISOLONE. [Suspect]
     Active Substance: METHYLPREDNISOLONE
     Indication: KIDNEY TRANSPLANT REJECTION
     Dosage: UNK
  10. CYCLOSPORIN [Suspect]
     Active Substance: CYCLOSPORINE
     Indication: KIDNEY TRANSPLANT REJECTION
     Dosage: UNK
  11. CYCLOSPORIN [Suspect]
     Active Substance: CYCLOSPORINE
     Indication: IMMUNOSUPPRESSANT DRUG THERAPY
  12. PENTAMIDINE [Concomitant]
     Active Substance: PENTAMIDINE
     Dosage: UNK (STARTED USUALLY ON THE 10TH POSTOPERATIVE DAY)
     Route: 055
  13. METHYLPREDNISOLONE. [Suspect]
     Active Substance: METHYLPREDNISOLONE
     Indication: IMMUNOSUPPRESSANT DRUG THERAPY
  14. AZATHIOPRINE. [Suspect]
     Active Substance: AZATHIOPRINE
     Indication: IMMUNOSUPPRESSANT DRUG THERAPY
  15. OKT3 [Suspect]
     Active Substance: MUROMONAB-CD3
     Indication: IMMUNOSUPPRESSANT DRUG THERAPY
     Dosage: UNK
  16. ANTILYMPHOCYTE GLOBULIN [Suspect]
     Active Substance: THYMOCYTE IMMUNE GLOBULIN NOS
     Indication: IMMUNOSUPPRESSANT DRUG THERAPY

REACTIONS (1)
  - Cytomegalovirus viraemia [Recovered/Resolved]
